FAERS Safety Report 6124442-1 (Version None)
Quarter: 2009Q1

REPORT INFORMATION
  Report Type: 
  Country: None (occurrence: None)
  Receive Date: 20090317
  Receipt Date: 20090317
  Transmission Date: 20090719
  Serious: Yes (Life-Threatening)
  Sender: FDA-Public Use
  Company Number: None

PATIENT
  Age: 14 Year
  Sex: Male
  Weight: 60.5 kg

DRUGS (2)
  1. PEG ASPARGASE [Suspect]
     Indication: ACUTE MYELOID LEUKAEMIA
     Dosage: 1392 UNITS EVERY 5 MINS X 3 IM
     Route: 030
     Dates: start: 20090101, end: 20090228
  2. . [Concomitant]

REACTIONS (6)
  - DYSPHAGIA [None]
  - EYE SWELLING [None]
  - LIP SWELLING [None]
  - PRURITUS [None]
  - SWELLING FACE [None]
  - WHEEZING [None]
